FAERS Safety Report 4659954-0 (Version None)
Quarter: 2005Q2

REPORT INFORMATION
  Report Type: 
  Country: None (occurrence: None)
  Receive Date: 20050502
  Receipt Date: 20050218
  Transmission Date: 20051028
  Serious: Yes (Hospitalization)
  Sender: FDA-Public Use
  Company Number: US_0411107651

PATIENT
  Sex: Male
  Weight: 91 kg

DRUGS (5)
  1. ZYPREXA [Suspect]
     Dosage: 5 MG DAY
     Dates: start: 20040803
  2. SYMBYAX [Suspect]
  3. ABILIFY [Concomitant]
  4. AVANDIA [Concomitant]
  5. AVANDAMET [Concomitant]

REACTIONS (1)
  - DIABETES MELLITUS NON-INSULIN-DEPENDENT [None]
